FAERS Safety Report 9843552 (Version 1)
Quarter: 2013Q4

REPORT INFORMATION
  Report Type: Spontaneous
  Country: US (occurrence: None)
  Receive Date: 20131219
  Receipt Date: 20131219
  Transmission Date: 20140711
  Serious: Yes (Hospitalization)
  Sender: FDA-Public Use
  Company Number: 163-20785-13033095

PATIENT
  Age: 60 Year
  Sex: Female

DRUGS (11)
  1. THALOMID [Suspect]
     Indication: PLASMA CELL MYELOMA
     Dosage: 100 MG, 1 IN 1 D, PO 06/2012 - /  /2012
     Route: 048
     Dates: start: 201206, end: 2012
  2. DIGOXIN (DIGOXIN) (TABLETS) [Concomitant]
  3. DAPSONE (DAPSONE) (TABLETS) [Concomitant]
  4. ACYCLOVIR (ACICLOVIR) (TABLETS) [Concomitant]
  5. ACYCLOVIR (ACICLOVIR) (CAPSULES) [Concomitant]
  6. METOPROLOL (METOPROLOL) (TABLETS) [Concomitant]
  7. FUROSEMIDE (FUROSEMIDE) (TABLETS) [Concomitant]
  8. ENERGIZING CAP FORMULA (VITAMINS) (CAPSULES) [Concomitant]
  9. LISINOPRIL (LISINOPRIL) (TABLETS) [Concomitant]
  10. ARANESP (DARBEPOETIN [Concomitant]
  11. VITAMIN D3 (COLECALCIFEROL) (CAPSULES) [Concomitant]

REACTIONS (1)
  - Gravitational oedema [None]
